FAERS Safety Report 14498126 (Version 3)
Quarter: 2018Q1

REPORT INFORMATION
  Report Type: Report from Study
  Country: US (occurrence: US)
  Receive Date: 20180207
  Receipt Date: 20180320
  Transmission Date: 20180509
  Serious: Yes (Hospitalization)
  Sender: FDA-Public Use
  Company Number: US-ACTELION-A-NJ2018-167265

PATIENT
  Age: 83 Year
  Sex: Male
  Weight: 79.37 kg

DRUGS (6)
  1. WARFARIN [Concomitant]
     Active Substance: WARFARIN
  2. REMODULIN [Concomitant]
     Active Substance: TREPROSTINIL
     Route: 042
  3. TRACLEER [Suspect]
     Active Substance: BOSENTAN
     Indication: PULMONARY ARTERIAL HYPERTENSION
     Dosage: 125 MG, BID
     Route: 048
  4. ADCIRCA [Concomitant]
     Active Substance: TADALAFIL
  5. TYVASO [Concomitant]
     Active Substance: TREPROSTINIL
  6. EPOPROSTENOL TEVA [Concomitant]

REACTIONS (8)
  - Diarrhoea [Unknown]
  - Diuretic therapy [Unknown]
  - Cardiac failure congestive [Unknown]
  - Oedema [Unknown]
  - Renal impairment [Unknown]
  - Therapy change [Unknown]
  - Fluid retention [Unknown]
  - Pulmonary arterial hypertension [Unknown]
